FAERS Safety Report 9380273 (Version 2)
Quarter: 2013Q3

REPORT INFORMATION
  Report Type: Spontaneous
  Country: US (occurrence: US)
  Receive Date: 20130702
  Receipt Date: 20130716
  Transmission Date: 20140515
  Serious: Yes (Other)
  Sender: FDA-Public Use
  Company Number: US-GLAXOSMITHKLINE-A0987835A

PATIENT
  Age: 35 Year
  Sex: Female
  Weight: 109.41 kg

DRUGS (14)
  1. BENLYSTA [Suspect]
     Indication: SYSTEMIC LUPUS ERYTHEMATOSUS
     Route: 042
     Dates: start: 20120621
  2. METHOTREXATE [Concomitant]
  3. PLAQUENIL [Concomitant]
     Dosage: 400MG PER DAY
  4. CELEBREX [Concomitant]
     Dosage: 200MG PER DAY
  5. PREDNISONE [Concomitant]
     Dosage: 5MG PER DAY
  6. TRAMADOL [Concomitant]
  7. BENADRYL [Concomitant]
  8. FOLIC ACID [Concomitant]
     Dosage: 1MG PER DAY
  9. ASPIRIN [Concomitant]
  10. VITAMIN D2 [Concomitant]
  11. VITAMIN D3 [Concomitant]
  12. RABIES VACCINE [Concomitant]
  13. ZOFRAN [Concomitant]
  14. TYLENOL [Concomitant]

REACTIONS (9)
  - Papillary thyroid cancer [Not Recovered/Not Resolved]
  - VIIth nerve paralysis [Unknown]
  - Local swelling [Not Recovered/Not Resolved]
  - Blood pressure decreased [Recovered/Resolved]
  - Headache [Recovered/Resolved]
  - Nausea [Recovered/Resolved]
  - Dizziness [Recovered/Resolved]
  - Infusion related reaction [Recovered/Resolved]
  - Nodule [Not Recovered/Not Resolved]
